FAERS Safety Report 16081266 (Version 1)
Quarter: 2019Q1

REPORT INFORMATION
  Report Type: Spontaneous
  Country: AT (occurrence: AT)
  Receive Date: 20190316
  Receipt Date: 20190316
  Transmission Date: 20190418
  Serious: Yes (Life-Threatening, Hospitalization, Other)
  Sender: FDA-Public Use
  Company Number: AT-ACCORD-113213

PATIENT
  Age: 68 Year
  Sex: Female
  Weight: 60 kg

DRUGS (13)
  1. MYOCHOLINE [Suspect]
     Active Substance: BETHANECHOL CHLORIDE
     Indication: PRODUCT USED FOR UNKNOWN INDICATION
     Dosage: ALSO RECEIVED ON 25-NOV-2017
     Dates: end: 20171113
  2. DOXAZOSIN [Suspect]
     Active Substance: DOXAZOSIN\DOXAZOSIN MESYLATE
     Indication: PRODUCT USED FOR UNKNOWN INDICATION
     Dosage: ALSO RECEIVED 8 MG ON 16-NOV-2017
     Dates: end: 20171115
  3. ALNA [Concomitant]
     Active Substance: TAMSULOSIN HYDROCHLORIDE
     Dosage: LAST ADMINISTERED ON 13-NOV-2017
     Dates: start: 20171118
  4. PANTOPRAZOLE [Concomitant]
     Active Substance: PANTOPRAZOLE
     Dosage: DOSE INCREASED, LAST ADMINISTERED ON 13-NOV-2017
     Dates: start: 20171114
  5. ABILIFY [Suspect]
     Active Substance: ARIPIPRAZOLE
     Indication: PRODUCT USED FOR UNKNOWN INDICATION
     Dates: start: 201509, end: 20171113
  6. ACETYLSALICYLIC ACID [Concomitant]
     Active Substance: ASPIRIN
  7. SPIRONOLACTONE. [Concomitant]
     Active Substance: SPIRONOLACTONE
     Dosage: LAST ADMINISTERED ON 13-NOV-2017
     Dates: start: 20171201
  8. ACETOLYT [Concomitant]
  9. EBRANTIL [Concomitant]
     Active Substance: URAPIDIL
     Dates: start: 20171113, end: 20171117
  10. OLEOVIT [Concomitant]
  11. ENALAPRIL MALEATE/LERCANIDIPINE HYDROCHLORIDE [Concomitant]
     Dosage: 2 DF, QD (20/10)
     Dates: end: 20171117
  12. FERRETAB KAPSELN [Concomitant]
     Dosage: UNK 1 QD, CAPSULE
     Dates: start: 20171113, end: 20171114
  13. METOPROLOL. [Concomitant]
     Active Substance: METOPROLOL

REACTIONS (10)
  - Chronic kidney disease [Unknown]
  - Pleural effusion [Unknown]
  - Proteinuria [Unknown]
  - Hypertensive crisis [Unknown]
  - Oliguria [Unknown]
  - Dyspnoea [Unknown]
  - Hypertensive nephropathy [Unknown]
  - Hypothermia [Recovered/Resolved]
  - Diabetic nephropathy [Unknown]
  - General physical health deterioration [Unknown]

NARRATIVE: CASE EVENT DATE: 20171113
